FAERS Safety Report 15395512 (Version 2)
Quarter: 2018Q3

REPORT INFORMATION
  Report Type: Spontaneous
  Country: US (occurrence: US)
  Receive Date: 20180918
  Receipt Date: 20180921
  Transmission Date: 20181010
  Serious: Yes (Hospitalization, Other)
  Sender: FDA-Public Use
  Company Number: US-JNJFOC-20180906449

PATIENT
  Age: 57 Year
  Sex: Male

DRUGS (1)
  1. INVOKANA [Suspect]
     Active Substance: CANAGLIFLOZIN
     Indication: TYPE 2 DIABETES MELLITUS
     Route: 048
     Dates: start: 20140404, end: 20151002

REACTIONS (6)
  - Osteomyelitis [Recovering/Resolving]
  - Gangrene [Recovering/Resolving]
  - Blister [Unknown]
  - Toe amputation [Unknown]
  - Cellulitis [Recovering/Resolving]
  - Wound [Unknown]

NARRATIVE: CASE EVENT DATE: 201707
